FAERS Safety Report 12464333 (Version 2)
Quarter: 2016Q3

REPORT INFORMATION
  Report Type: Spontaneous
  Country: US (occurrence: US)
  Receive Date: 20160614
  Receipt Date: 20160721
  Transmission Date: 20161109
  Serious: Yes (Other)
  Sender: FDA-Public Use
  Company Number: US-PFIZER INC-2016291518

PATIENT
  Age: 59 Year
  Sex: Male
  Weight: 90.72 kg

DRUGS (1)
  1. TRIFLURIDINE. [Suspect]
     Active Substance: TRIFLURIDINE
     Indication: HERPES VIRUS INFECTION
     Dosage: 1 DROP TO LEFT EYE, 4 TIMES A DAY, CAN DO UP TO 9 TIMES A DAY
     Route: 047
     Dates: start: 20160603

REACTIONS (7)
  - Eye disorder [Unknown]
  - Blindness [Unknown]
  - Incorrect product storage [Not Recovered/Not Resolved]
  - Drug ineffective [Not Recovered/Not Resolved]
  - Photophobia [Unknown]
  - Eye pain [Unknown]
  - Poor quality drug administered [Not Recovered/Not Resolved]

NARRATIVE: CASE EVENT DATE: 20160603
